FAERS Safety Report 6818403-4 (Version None)
Quarter: 2010Q3

REPORT INFORMATION
  Report Type: 
  Country: None (occurrence: None)
  Receive Date: 20100706
  Receipt Date: 20080402
  Transmission Date: 20110219
  Serious: No
  Sender: FDA-Public Use
  Company Number: US-PFIZER INC-2008019300

PATIENT
  Sex: Male
  Weight: 25.4 kg

DRUGS (5)
  1. ZITHROMAX [Suspect]
     Indication: PHARYNGITIS STREPTOCOCCAL
     Dates: start: 20080110
  2. MACROGOL [Concomitant]
  3. LAXATIVES [Concomitant]
  4. MONTELUKAST SODIUM [Concomitant]
  5. MULTI-VITAMINS [Concomitant]

REACTIONS (1)
  - DRUG SCREEN FALSE POSITIVE [None]
